FAERS Safety Report 24869788 (Version 1)
Quarter: 2025Q1

REPORT INFORMATION
  Report Type: Spontaneous
  Country: US (occurrence: None)
  Receive Date: 20250118
  Receipt Date: 20250118
  Transmission Date: 20250409
  Serious: Yes (Other)
  Sender: FDA-CTU
  Company Number: None

PATIENT
  Age: 35 Year
  Sex: Male
  Weight: 130.5 kg

DRUGS (1)
  1. PROACTIV [Suspect]
     Active Substance: BENZOYL PEROXIDE

REACTIONS (1)
  - Dry skin [None]

NARRATIVE: CASE EVENT DATE: 20130413
